FAERS Safety Report 18305896 (Version 1)
Quarter: 2020Q3

REPORT INFORMATION
  Report Type: Report from Study
  Country: CO (occurrence: CO)
  Receive Date: 20200923
  Receipt Date: 20200923
  Transmission Date: 20201103
  Serious: Yes (Death, Other)
  Sender: FDA-Public Use
  Company Number: CO-TOLMAR, INC.-20CO022855

PATIENT
  Sex: Male

DRUGS (1)
  1. ELIGARD [Suspect]
     Active Substance: LEUPROLIDE ACETATE
     Indication: PROSTATE CANCER
     Dosage: 22.5 MG, UNKNOWN FREQUENCY
     Route: 058
     Dates: start: 20200205, end: 20200205

REACTIONS (4)
  - Dehydration [Unknown]
  - Unevaluable event [Unknown]
  - Death [Fatal]
  - Renal disorder [Unknown]
